FAERS Safety Report 18228418 (Version 1)
Quarter: 2020Q3

REPORT INFORMATION
  Report Type: Spontaneous
  Country: US (occurrence: US)
  Receive Date: 20200903
  Receipt Date: 20200903
  Transmission Date: 20201103
  Serious: Yes (Hospitalization, Other)
  Sender: FDA-Public Use
  Company Number: US-GW PHARMA-202008USGW02830

PATIENT

DRUGS (19)
  1. CYTOTEC [Concomitant]
     Active Substance: MISOPROSTOL
     Indication: PRODUCT USED FOR UNKNOWN INDICATION
     Dosage: UNK
     Route: 065
  2. EPIDIOLEX [Suspect]
     Active Substance: CANNABIDIOL
     Dosage: 10.47 MG/KG, 440 MILLIGRAM, BID
     Route: 048
  3. EPIDIOLEX [Suspect]
     Active Substance: CANNABIDIOL
     Dosage: 8.09 MG/KG, 340 MILLIGRAM, BID
     Route: 048
  4. EPIDIOLEX [Suspect]
     Active Substance: CANNABIDIOL
     Dosage: 7.61 MG/KG, 320 MILLIGRAM, BID
     Route: 048
     Dates: start: 20200319
  5. KEPPRA [Concomitant]
     Active Substance: LEVETIRACETAM
     Dosage: 1000 MILLIGRAM, BID (FORMULATION: EXTENDED RELEASE TABLET)
     Route: 048
  6. TEGRETOL [Concomitant]
     Active Substance: CARBAMAZEPINE
     Indication: EPILEPSY
     Dosage: 1000 MILLIGRAM, QD (400 MG MORNING, 200 MG IN NOON, 400 MG IN EVENING)
     Route: 065
  7. KEPPRA [Concomitant]
     Active Substance: LEVETIRACETAM
     Indication: EPILEPSY
     Dosage: 2000 MILLIGRAM, QD (FORMULATION: EXTENDED RELEASE TABLET)
     Route: 048
  8. VOLTAREN [DICLOFENAC] [Concomitant]
     Active Substance: DICLOFENAC SODIUM
     Indication: PRODUCT USED FOR UNKNOWN INDICATION
     Dosage: UNK (AS DIRECTED)
     Route: 061
  9. EPIDIOLEX [Suspect]
     Active Substance: CANNABIDIOL
     Dosage: 10 MG/KG, 420 MILLIGRAM, BID
     Route: 048
     Dates: start: 2019, end: 2019
  10. ONFI [Concomitant]
     Active Substance: CLOBAZAM
     Dosage: 20 MILLIGRAM, QD
     Route: 048
  11. LACTULOSE. [Concomitant]
     Active Substance: LACTULOSE
     Indication: PRODUCT USED FOR UNKNOWN INDICATION
     Dosage: UNK
     Route: 065
  12. ONFI [Concomitant]
     Active Substance: CLOBAZAM
     Indication: EPILEPSY
     Dosage: 50 MILLIGRAM, QD (20 MG IN MORNING AND 30 MG IN EVENING)
     Route: 065
  13. VITAMIN B COMPLEX [Concomitant]
     Active Substance: CYANOCOBALAMIN\DEXPANTHENOL\NIACINAMIDE\PYRIDOXINE HYDROCHLORIDE\RIBOFLAVIN 5^-PHOSPHATE SODIUM\THIAMINE HYDROCHLORIDE\VITAMIN B COMPLEX
     Indication: PRODUCT USED FOR UNKNOWN INDICATION
     Dosage: 1 DOSAGE FORM, QD
     Route: 048
  14. EPIDIOLEX [Suspect]
     Active Substance: CANNABIDIOL
     Indication: LENNOX-GASTAUT SYNDROME
     Dosage: 5 MG/KG, 210 MILLIGRAM, BID (FIRST SHIPPED ON 11 JAN 2019)
     Route: 048
     Dates: start: 201901, end: 2019
  15. EPIDIOLEX [Suspect]
     Active Substance: CANNABIDIOL
     Dosage: 20 MG/KG, 840 MILLIGRAM, BID
     Route: 048
     Dates: start: 2019
  16. EPIDIOLEX [Suspect]
     Active Substance: CANNABIDIOL
     Dosage: 5.95 MG/KG, 250 MILLIGRAM, BID
     Route: 048
  17. ASPIRIN 81 [Concomitant]
     Active Substance: ASPIRIN
     Indication: PRODUCT USED FOR UNKNOWN INDICATION
     Dosage: 81 MILLIGRAM, QD (FORMULATION: DELAYED RELEASE)
     Route: 048
  18. EPIDIOLEX [Suspect]
     Active Substance: CANNABIDIOL
     Dosage: 7.5 MG/KG, 630 MILLIGRAM, BID
     Route: 048
     Dates: start: 2019, end: 2019
  19. EPIDIOLEX [Suspect]
     Active Substance: CANNABIDIOL
     Dosage: 9.28 MG/KG, 390 MILLIGRAM, BID
     Route: 048

REACTIONS (14)
  - Focal dyscognitive seizures [Unknown]
  - Hospitalisation [Not Recovered/Not Resolved]
  - Vitamin B6 increased [Unknown]
  - Hypoaesthesia [Not Recovered/Not Resolved]
  - Joint stiffness [Unknown]
  - Gingival discomfort [Recovering/Resolving]
  - Dizziness [Unknown]
  - Joint dislocation [Unknown]
  - Peripheral swelling [Unknown]
  - Vaginal infection [Unknown]
  - Pruritus [Unknown]
  - Urinary tract infection [Unknown]
  - Abdominal pain upper [Unknown]
  - Crying [Unknown]

NARRATIVE: CASE EVENT DATE: 201902
